FAERS Safety Report 9745940 (Version 2)
Quarter: 2013Q4

REPORT INFORMATION
  Report Type: Spontaneous
  Country: IT (occurrence: FR)
  Receive Date: 20131211
  Receipt Date: 20131226
  Transmission Date: 20140711
  Serious: Yes (Hospitalization)
  Sender: FDA-Public Use
  Company Number: FR-FRI-1000051940

PATIENT
  Age: 98 Year
  Sex: Female

DRUGS (9)
  1. NEBIVOLOL [Suspect]
     Dosage: 2.5 MG
     Route: 048
     Dates: end: 20131102
  2. BI-TILDIEM [Suspect]
     Dosage: 240 MG
     Route: 048
     Dates: end: 20131102
  3. HEMIGOXINE [Suspect]
     Dosage: 0.125 MG
     Route: 048
     Dates: end: 20131102
  4. FUROSEMIDE [Concomitant]
     Dosage: 80 MG
     Route: 048
     Dates: end: 20131102
  5. LASILIX SPECIAL [Concomitant]
     Dosage: 125 MG
     Route: 048
     Dates: end: 20131102
  6. KALEORID [Concomitant]
     Dosage: 5000 MG
     Route: 048
     Dates: end: 20131102
  7. PREVISCAN [Concomitant]
     Dosage: 5 MG
     Route: 048
  8. BROMAZEPAM [Concomitant]
     Dosage: 1.5 MG
     Route: 048
  9. DAFALGAN [Concomitant]
     Dosage: 1500 MG
     Route: 048

REACTIONS (5)
  - Atrioventricular block complete [Recovered/Resolved]
  - Bundle branch block right [Recovered/Resolved]
  - Syncope [Recovered/Resolved]
  - Cardioactive drug level increased [Recovered/Resolved]
  - Drug interaction [Recovered/Resolved]
